FAERS Safety Report 8923588 (Version 2)
Quarter: 2013Q1

REPORT INFORMATION
  Report Type: Spontaneous
  Country: FR (occurrence: FR)
  Receive Date: 20121123
  Receipt Date: 20130122
  Transmission Date: 20140127
  Serious: Yes (Hospitalization)
  Sender: FDA-Public Use
  Company Number: FR-SANOFI-AVENTIS-2012SA085201

PATIENT
  Age: 42 Year
  Sex: Male

DRUGS (9)
  1. LOVENOX [Suspect]
     Indication: PRODUCT USED FOR UNKNOWN INDICATION
     Route: 048
     Dates: start: 20121015
  2. TRIATEC [Suspect]
     Indication: HYPERTENSION
     Route: 048
     Dates: start: 20121019
  3. DI-HYDAN [Suspect]
     Indication: EPILEPSY
     Route: 048
     Dates: start: 20121023, end: 20121026
  4. DI-HYDAN [Suspect]
     Indication: EPILEPSY
     Route: 065
     Dates: start: 20121029
  5. PRODILANTIN [Suspect]
     Indication: PRODUCT USED FOR UNKNOWN INDICATION
     Route: 042
     Dates: start: 20121012, end: 20121023
  6. RIVOTRIL [Concomitant]
  7. CALCIPARINE [Concomitant]
  8. ATENOLOL [Concomitant]
     Indication: HYPERTENSION
  9. KEPPRA [Concomitant]
     Dates: start: 20121026, end: 20121030

REACTIONS (1)
  - Hepatic enzyme increased [Recovered/Resolved]
